FAERS Safety Report 9325708 (Version 1)
Quarter: 2013Q2

REPORT INFORMATION
  Report Type: Spontaneous
  Country: US (occurrence: US)
  Receive Date: 20130604
  Receipt Date: 20130604
  Transmission Date: 20140414
  Serious: No
  Sender: FDA-Public Use
  Company Number: PHEH2013US011780

PATIENT
  Sex: Female

DRUGS (5)
  1. TASIGNA [Suspect]
     Dosage: 300 MG, BID
     Route: 048
  2. CALCIUM [Concomitant]
  3. VITAMIN D [Concomitant]
  4. GLUCOSAMINE [Concomitant]
  5. MAGNESIUM [Concomitant]

REACTIONS (1)
  - Rash generalised [Unknown]
